FAERS Safety Report 7374970-6 (Version None)
Quarter: 2011Q1

REPORT INFORMATION
  Report Type: 
  Country: None (occurrence: None)
  Receive Date: 20110325
  Receipt Date: 20110314
  Transmission Date: 20110831
  Serious: Yes (Hospitalization)
  Sender: FDA-Public Use
  Company Number: PHHY2011FR21980

PATIENT
  Sex: Male

DRUGS (11)
  1. SINGULAIR [Concomitant]
  2. CORTANCYL [Concomitant]
  3. ABILIFY [Concomitant]
  4. BRICANYL [Concomitant]
  5. ATROVENT [Concomitant]
  6. ZOLPIDEM [Concomitant]
  7. TEGRETOL [Suspect]
     Dosage: UNK
     Dates: start: 20090101, end: 20101210
  8. THEOSTAT [Concomitant]
     Dosage: UNK
  9. RIVOTRIL [Concomitant]
  10. SYMBICORT [Concomitant]
     Dosage: 400 / 12 MCG / DOSE INHALED
  11. TEGRETOL [Suspect]
     Indication: NEURALGIA
     Dosage: UNK
     Dates: start: 20080101, end: 20080901

REACTIONS (3)
  - PYREXIA [None]
  - BRONCHOSPASM [None]
  - BRONCHITIS [None]
